FAERS Safety Report 5336509-6 (Version None)
Quarter: 2007Q2

REPORT INFORMATION
  Report Type: 
  Country: None (occurrence: None)
  Receive Date: 20070524
  Receipt Date: 20070511
  Transmission Date: 20071010
  Serious: Yes (Death)
  Sender: FDA-Public Use
  Company Number: CLOF-10533

PATIENT
  Age: 80 Year

DRUGS (1)
  1. CLOFARABINE, MFR: GENZYME [Suspect]
     Indication: ACUTE MYELOID LEUKAEMIA
     Dates: start: 20070402, end: 20070406

REACTIONS (2)
  - LOWER RESPIRATORY TRACT INFECTION [None]
  - THROMBOCYTOPENIA [None]
